FAERS Safety Report 24823407 (Version 1)
Quarter: 2025Q1

REPORT INFORMATION
  Report Type: Spontaneous
  Country: US (occurrence: US)
  Receive Date: 20250109
  Receipt Date: 20250109
  Transmission Date: 20250408
  Serious: No
  Sender: STALLERGENES
  Company Number: US-AIMMUNE THERAPEUTICS, INC.-2023AIMT00146

PATIENT
  Age: 10 Year
  Sex: Male
  Weight: 35.828 kg

DRUGS (11)
  1. PALFORZIA [Suspect]
     Active Substance: PEANUT
     Indication: Food allergy
     Dates: start: 20220725, end: 20220725
  2. PALFORZIA [Suspect]
     Active Substance: PEANUT
     Dosage: 3 MG, 1X/DAY
     Dates: start: 20220726, end: 20220726
  3. PALFORZIA [Suspect]
     Active Substance: PEANUT
     Dates: start: 20220726, end: 20220726
  4. PALFORZIA [Suspect]
     Active Substance: PEANUT
     Dates: start: 20220902, end: 20220902
  5. PALFORZIA [Suspect]
     Active Substance: PEANUT
     Dosage: 1 MG, 1X/DAY, INCREASED DOSING
     Dates: start: 20220902
  6. FLOVENT [Concomitant]
     Active Substance: FLUTICASONE PROPIONATE
     Indication: Asthma
  7. FLOVENT [Concomitant]
     Active Substance: FLUTICASONE PROPIONATE
     Indication: Bronchial hyperreactivity
  8. ALBUTEROL [Concomitant]
     Active Substance: ALBUTEROL
     Indication: Asthma
  9. ALBUTEROL [Concomitant]
     Active Substance: ALBUTEROL
     Indication: Bronchial hyperreactivity
  10. FLUTICASONE [Concomitant]
     Active Substance: FLUTICASONE
     Indication: Nasal congestion
  11. MUCINEX [Concomitant]
     Active Substance: GUAIFENESIN
     Indication: Product used for unknown indication

REACTIONS (5)
  - Eosinophilic oesophagitis [Recovered/Resolved]
  - Dyspepsia [Recovered/Resolved]
  - Vomiting [Recovered/Resolved]
  - Nausea [Recovered/Resolved]
  - Gastrooesophageal reflux disease [Recovered/Resolved]

NARRATIVE: CASE EVENT DATE: 20220726
